FAERS Safety Report 15198541 (Version 2)
Quarter: 2018Q3

REPORT INFORMATION
  Report Type: Report from Study
  Country: None (occurrence: AU)
  Receive Date: 20180725
  Receipt Date: 20180814
  Transmission Date: 20181010
  Serious: Yes (Other)
  Sender: FDA-Public Use
  Company Number: AU-ABBVIE-18K-008-2429031-00

PATIENT
  Age: 24 Year
  Sex: Female

DRUGS (1)
  1. HUMIRA [Suspect]
     Active Substance: ADALIMUMAB
     Indication: CROHN^S DISEASE
     Route: 058
     Dates: start: 201711

REACTIONS (7)
  - Gastrointestinal oedema [Unknown]
  - Colitis [Unknown]
  - Crohn^s disease [Unknown]
  - Colitis erosive [Unknown]
  - Gastrointestinal haemorrhage [Unknown]
  - Drug level changed [Unknown]
  - Crohn^s disease [Unknown]

NARRATIVE: CASE EVENT DATE: 201806
